FAERS Safety Report 8075276-2 (Version None)
Quarter: 2012Q1

REPORT INFORMATION
  Report Type: 
  Country: None (occurrence: None)
  Receive Date: 20120127
  Receipt Date: 20120119
  Transmission Date: 20120608
  Serious: Yes (Hospitalization)
  Sender: FDA-Public Use
  Company Number: US-US-EMD SERONO, INC.-7103313

PATIENT
  Sex: Female

DRUGS (2)
  1. REBIF [Suspect]
     Indication: PRODUCT USED FOR UNKNOWN INDICATION
     Route: 058
     Dates: start: 20090617
  2. REBIF [Suspect]
     Route: 058

REACTIONS (3)
  - BOWEL MOVEMENT IRREGULARITY [None]
  - AMMONIA INCREASED [None]
  - SPINAL DISORDER [None]
